FAERS Safety Report 4694506-8 (Version None)
Quarter: 2005Q2

REPORT INFORMATION
  Report Type: 
  Country: None (occurrence: None)
  Receive Date: 20050614
  Receipt Date: 20050408
  Transmission Date: 20051028
  Serious: No
  Sender: FDA-Public Use
  Company Number: USA050495283

PATIENT
  Age: 71 Year
  Sex: Male

DRUGS (5)
  1. CIALIS [Suspect]
     Dosage: 20 MG
  2. LIPITOR [Concomitant]
  3. ATICAN [Concomitant]
  4. ATENOLOL [Concomitant]
  5. VITAMINS [Concomitant]

REACTIONS (8)
  - BACK PAIN [None]
  - DIARRHOEA [None]
  - DRUG INEFFECTIVE [None]
  - FATIGUE [None]
  - FLATULENCE [None]
  - GASTROINTESTINAL DISORDER [None]
  - MUSCLE SPASMS [None]
  - THERAPEUTIC RESPONSE DECREASED [None]
